FAERS Safety Report 10798038 (Version 1)
Quarter: 2015Q1

REPORT INFORMATION
  Report Type: Spontaneous
  Country: US (occurrence: US)
  Receive Date: 20150216
  Receipt Date: 20150216
  Transmission Date: 20150721
  Serious: No
  Sender: FDA-Public Use
  Company Number: US-PFIZER INC-2015055497

PATIENT
  Sex: Female

DRUGS (6)
  1. EDECRIN [Concomitant]
     Active Substance: ETHACRYNIC ACID
     Indication: DIURETIC THERAPY
     Dosage: UNK
  2. LYRICA [Suspect]
     Active Substance: PREGABALIN
     Dosage: 100 MG, 1X/DAY (AT NIGHT)
  3. TERAZOSIN [Concomitant]
     Active Substance: TERAZOSIN\TERAZOSIN HYDROCHLORIDE
     Dosage: UNK
  4. LYRICA [Suspect]
     Active Substance: PREGABALIN
     Indication: NEURALGIA
     Dosage: 75 MG, 1X/DAY
  5. LOSARTAN [Concomitant]
     Active Substance: LOSARTAN
     Dosage: UNK
  6. COZAAR [Concomitant]
     Active Substance: LOSARTAN POTASSIUM
     Dosage: UNK

REACTIONS (8)
  - Sleep disorder [Unknown]
  - Sluggishness [Unknown]
  - Somnolence [Unknown]
  - Mental disorder [Unknown]
  - Disturbance in attention [Unknown]
  - Impaired driving ability [Unknown]
  - Discomfort [Unknown]
  - Activities of daily living impaired [Unknown]
